FAERS Safety Report 19913070 (Version 1)
Quarter: 2021Q4

REPORT INFORMATION
  Report Type: Spontaneous
  Country: US (occurrence: US)
  Receive Date: 20211004
  Receipt Date: 20211004
  Transmission Date: 20220303
  Serious: Yes (Other)
  Sender: FDA-Public Use
  Company Number: US-BAYER-2021A220772

PATIENT
  Sex: Male

DRUGS (2)
  1. ASPIRIN [Interacting]
     Active Substance: ASPIRIN
     Dosage: UNK
     Dates: end: 202107
  2. ELIQUIS [Interacting]
     Active Substance: APIXABAN
     Dosage: UNK
     Dates: end: 202107

REACTIONS (2)
  - Gastrointestinal haemorrhage [None]
  - Labelled drug-drug interaction medication error [None]

NARRATIVE: CASE EVENT DATE: 20210701
